FAERS Safety Report 5816439-3 (Version None)
Quarter: 2008Q3

REPORT INFORMATION
  Report Type: 
  Country: None (occurrence: None)
  Receive Date: 20080721
  Receipt Date: 20080505
  Transmission Date: 20090109
  Serious: No
  Sender: FDA-Public Use
  Company Number: US-BAUSCH-2008BL001998

PATIENT
  Age: 28 Year
  Sex: Male

DRUGS (3)
  1. OPCON-A [Suspect]
     Indication: EYE ALLERGY
     Route: 047
     Dates: start: 20080428, end: 20080428
  2. OPCON-A [Suspect]
     Route: 047
     Dates: start: 20080101, end: 20080101
  3. OPCON-A [Suspect]
     Route: 047
     Dates: start: 20080505, end: 20080505

REACTIONS (2)
  - EYE IRRITATION [None]
  - LACRIMATION INCREASED [None]
